FAERS Safety Report 6646702-8 (Version None)
Quarter: 2010Q1

REPORT INFORMATION
  Report Type: 
  Country: None (occurrence: None)
  Receive Date: 20100323
  Receipt Date: 20100316
  Transmission Date: 20100710
  Serious: Yes (Other)
  Sender: FDA-Public Use
  Company Number: US-SANOFI-AVENTIS-2010SA015314

PATIENT
  Age: 67 Year
  Sex: Male
  Weight: 113.63 kg

DRUGS (5)
  1. MULTAQ [Suspect]
     Indication: ATRIAL FIBRILLATION
     Route: 048
     Dates: start: 20100215
  2. COREG [Concomitant]
     Indication: HYPERTENSION
     Dates: start: 20090101
  3. COREG [Concomitant]
     Indication: HEART RATE
     Dates: start: 20090101
  4. COUMADIN [Concomitant]
  5. DYAZIDE [Concomitant]

REACTIONS (1)
  - ATRIAL FIBRILLATION [None]
